FAERS Safety Report 5467865-6 (Version None)
Quarter: 2007Q3

REPORT INFORMATION
  Report Type: 
  Country: None (occurrence: None)
  Receive Date: 20070926
  Receipt Date: 20070917
  Transmission Date: 20080115
  Serious: Yes (Other)
  Sender: FDA-Public Use
  Company Number: DE-JNJFOC-20070902920

PATIENT
  Age: 24 Year
  Sex: Male

DRUGS (2)
  1. HALDOL [Suspect]
     Indication: SCHIZOPHRENIA
  2. NEUROCIL [Suspect]
     Indication: SCHIZOPHRENIA

REACTIONS (11)
  - AGGRESSION [None]
  - ANXIETY [None]
  - DISTURBANCE IN ATTENTION [None]
  - FACIAL SPASM [None]
  - GASTRIC DISORDER [None]
  - HYPOAESTHESIA ORAL [None]
  - PARAESTHESIA [None]
  - RASH [None]
  - SENSORY DISTURBANCE [None]
  - SPEECH DISORDER [None]
  - TONGUE PARALYSIS [None]
